FAERS Safety Report 13751400 (Version 2)
Quarter: 2017Q3

REPORT INFORMATION
  Report Type: Spontaneous
  Country: US (occurrence: US)
  Receive Date: 20170713
  Receipt Date: 20170713
  Transmission Date: 20171127
  Serious: No
  Sender: FDA-Public Use
  Company Number: US-ASTELLAS-2017US016262

PATIENT
  Age: 74 Year
  Sex: Female

DRUGS (3)
  1. MYRBETRIQ [Suspect]
     Active Substance: MIRABEGRON
     Indication: PRODUCT USED FOR UNKNOWN INDICATION
     Route: 048
     Dates: start: 201703, end: 201703
  2. MYRBETRIQ [Suspect]
     Active Substance: MIRABEGRON
     Route: 048
     Dates: end: 20170426
  3. MYRBETRIQ [Suspect]
     Active Substance: MIRABEGRON
     Indication: PRODUCT USED FOR UNKNOWN INDICATION
     Route: 048

REACTIONS (9)
  - Dry skin [Unknown]
  - Fatigue [Unknown]
  - Asthenia [Unknown]
  - Feeling hot [Unknown]
  - Drug effect incomplete [Unknown]
  - Dry eye [Unknown]
  - Dry mouth [Unknown]
  - Drug dose omission [Unknown]
  - Dehydration [Unknown]

NARRATIVE: CASE EVENT DATE: 20170426
